FAERS Safety Report 17902600 (Version 6)
Quarter: 2021Q1

REPORT INFORMATION
  Report Type: Report from Study
  Country: TR (occurrence: TR)
  Receive Date: 20200616
  Receipt Date: 20210122
  Transmission Date: 20210419
  Serious: Yes (Hospitalization)
  Sender: FDA-Public Use
  Company Number: TR-CELGENEUS-TUR-20200602096

PATIENT
  Age: 24 Year
  Sex: Female
  Weight: 70.1 kg

DRUGS (9)
  1. CORASPIN [Concomitant]
     Active Substance: ASPIRIN
     Indication: SPLENECTOMY
     Route: 048
     Dates: start: 20180301, end: 20200608
  2. LUSPATERCEPT. [Suspect]
     Active Substance: LUSPATERCEPT
     Route: 058
     Dates: start: 20200521
  3. EXJADE [Concomitant]
     Active Substance: DEFERASIROX
     Indication: CHELATION THERAPY
     Dosage: 2000 MILLIGRAM
     Route: 048
     Dates: start: 20190628, end: 20200608
  4. PANTPAS [Concomitant]
     Active Substance: PANTOPRAZOLE SODIUM
     Indication: GASTROOESOPHAGEAL REFLUX DISEASE
     Dosage: 40 MILLIGRAM
     Route: 048
     Dates: start: 20170331
  5. ANTEPSIN [Concomitant]
     Active Substance: SUCRALFATE
     Indication: GASTRITIS EROSIVE
     Dosage: 750 MILLILITER
     Route: 048
     Dates: start: 20190918
  6. LUSPATERCEPT. [Suspect]
     Active Substance: LUSPATERCEPT
     Indication: THALASSAEMIA BETA
     Route: 058
     Dates: start: 20170310
  7. EUTHYROX [Concomitant]
     Active Substance: LEVOTHYROXINE SODIUM
     Indication: HYPOTHYROIDISM
     Dosage: 50 MILLIGRAM
     Route: 048
     Dates: start: 20150708
  8. DESFERAL [Concomitant]
     Active Substance: DEFEROXAMINE MESYLATE
     Indication: CHELATION THERAPY
     Dosage: 2500 MILLIGRAM
     Route: 058
     Dates: start: 20190628, end: 20200607
  9. DESFERAL [Concomitant]
     Active Substance: DEFEROXAMINE MESYLATE
     Dosage: 3000 MILLIGRAM
     Route: 041
     Dates: start: 20200608, end: 20200618

REACTIONS (1)
  - Cerebral venous sinus thrombosis [Recovered/Resolved]

NARRATIVE: CASE EVENT DATE: 20200605
